FAERS Safety Report 7818161-0 (Version None)
Quarter: 2011Q4

REPORT INFORMATION
  Report Type: 
  Country: None (occurrence: None)
  Receive Date: 20111017
  Receipt Date: 20111004
  Transmission Date: 20120403
  Serious: Yes (Hospitalization, Other)
  Sender: FDA-Public Use
  Company Number: US-BAYER-201029757NA

PATIENT
  Age: 15 Year
  Sex: Female
  Weight: 79.365 kg

DRUGS (4)
  1. TOPIRAMATE [Concomitant]
  2. ATENOLOL [Concomitant]
  3. MOTRIN [Concomitant]
  4. YAZ [Suspect]
     Indication: ORAL CONTRACEPTION
     Dosage: UNK UNK, UNK
     Route: 048
     Dates: start: 20090301, end: 20091201

REACTIONS (2)
  - GALLBLADDER DISORDER [None]
  - CHOLECYSTITIS CHRONIC [None]
